FAERS Safety Report 12142361 (Version 1)
Quarter: 2016Q1

REPORT INFORMATION
  Report Type: Spontaneous
  Country: GB (occurrence: GB)
  Receive Date: 20160303
  Receipt Date: 20160303
  Transmission Date: 20160526
  Serious: Yes (Other)
  Sender: FDA-Public Use
  Company Number: GB-JNJFOC-20160301598

PATIENT
  Age: 59 Year
  Sex: Male
  Weight: 74.38 kg

DRUGS (2)
  1. DULOXETINE. [Concomitant]
     Active Substance: DULOXETINE
     Route: 065
  2. XARELTO [Suspect]
     Active Substance: RIVAROXABAN
     Indication: ANTICOAGULANT THERAPY
     Route: 048
     Dates: start: 20160109

REACTIONS (2)
  - Polyuria [Recovered/Resolved]
  - Nocturia [Recovered/Resolved]

NARRATIVE: CASE EVENT DATE: 20160109
